FAERS Safety Report 7240539-7 (Version None)
Quarter: 2011Q1

REPORT INFORMATION
  Report Type: 
  Country: None (occurrence: None)
  Receive Date: 20110124
  Receipt Date: 20110119
  Transmission Date: 20110831
  Serious: Yes (Hospitalization)
  Sender: FDA-Public Use
  Company Number: US-BAYER-201023929NA

PATIENT
  Sex: Female
  Weight: 67.273 kg

DRUGS (2)
  1. IBUPROFEN [Concomitant]
     Indication: DYSMENORRHOEA
     Dosage: 200 MG (DAILY DOSE), PRN, ORAL
     Route: 048
     Dates: start: 20091224, end: 20100525
  2. DIENOGEST 0/2/3/0MG + ESTRADIOL VALERATE 3/2/2/1MG [Suspect]
     Indication: PROPHYLAXIS AGAINST GASTROINTESTINAL ULCER
     Dosage: 2 TABLETS
     Route: 048
     Dates: start: 20100217, end: 20100510

REACTIONS (4)
  - OVARIAN TORSION [None]
  - NAUSEA [None]
  - VOMITING [None]
  - FLANK PAIN [None]
